FAERS Safety Report 17845965 (Version 1)
Quarter: 2020Q2

REPORT INFORMATION
  Report Type: Spontaneous
  Country: US (occurrence: US)
  Receive Date: 20200601
  Receipt Date: 20200601
  Transmission Date: 20200714
  Serious: No
  Sender: FDA-Public Use
  Company Number: US-GLAXOSMITHKLINE-US2020AMR088011

PATIENT
  Sex: Female
  Weight: 56.7 kg

DRUGS (4)
  1. XANAX [Concomitant]
     Active Substance: ALPRAZOLAM
     Indication: ANXIETY
     Dosage: 0.5 MG 2 IN THE MORNING AND THEN 1 MORE IF THE AFTERNOON IF SHE NEEDS IT
  2. CHANTIX FILM-COATED TABLET [Concomitant]
     Indication: SMOKING CESSATION THERAPY
     Dosage: UNK
     Route: 065
  3. ZYBAN [Suspect]
     Active Substance: BUPROPION HYDROCHLORIDE
     Indication: SMOKING CESSATION THERAPY
     Dosage: UNK
     Route: 065
  4. SERTRALINE [Concomitant]
     Active Substance: SERTRALINE HYDROCHLORIDE
     Indication: DEPRESSION
     Dosage: 0.5 DF, 1D
     Route: 048

REACTIONS (2)
  - Body height decreased [Unknown]
  - Drug ineffective [Unknown]
